FAERS Safety Report 6126222-X (Version None)
Quarter: 2009Q1

REPORT INFORMATION
  Report Type: 
  Country: None (occurrence: None)
  Receive Date: 20090320
  Receipt Date: 20090316
  Transmission Date: 20090719
  Serious: Yes (Hospitalization)
  Sender: FDA-Public Use
  Company Number: D0060900A

PATIENT
  Age: 19 Year
  Sex: Male
  Weight: 78 kg

DRUGS (5)
  1. LAMOTRIGINE [Suspect]
     Indication: EPILEPSY
     Dosage: 100MG TWICE PER DAY
     Route: 048
     Dates: start: 20081110, end: 20081210
  2. ERGENYL CHRONO [Suspect]
     Indication: EPILEPSY
     Dosage: 500MG PER DAY
     Route: 048
     Dates: start: 20070501
  3. RANITIDINE HCL [Suspect]
     Dosage: 150MG PER DAY
     Route: 048
     Dates: start: 20010101, end: 20081210
  4. IBUPROFEN [Suspect]
     Indication: MIGRAINE
     Dosage: 400MG AS REQUIRED
     Route: 048
     Dates: end: 20081208
  5. PANTOZOL [Suspect]
     Dosage: 20MG PER DAY
     Route: 048
     Dates: start: 20010101, end: 20081210

REACTIONS (4)
  - MYCOPLASMA INFECTION [None]
  - PYREXIA [None]
  - RASH MACULAR [None]
  - TRANSAMINASES INCREASED [None]
